FAERS Safety Report 6166903-5 (Version None)
Quarter: 2009Q2

REPORT INFORMATION
  Report Type: 
  Country: None (occurrence: None)
  Receive Date: 20090424
  Receipt Date: 20090416
  Transmission Date: 20091009
  Serious: Yes (Other)
  Sender: FDA-Public Use
  Company Number: B0571415A

PATIENT
  Age: 3 Year
  Sex: Female

DRUGS (3)
  1. AUGMENTIN ES-600 [Suspect]
     Dosage: 6ML TWICE PER DAY
     Route: 065
     Dates: start: 20081031, end: 20081101
  2. ACETAMINOPHEN [Concomitant]
     Route: 065
  3. EXPECTORANT [Concomitant]
     Route: 065

REACTIONS (1)
  - AGGRESSION [None]
